FAERS Safety Report 13987565 (Version 1)
Quarter: 2017Q3

REPORT INFORMATION
  Report Type: Spontaneous
  Country: RU (occurrence: RU)
  Receive Date: 20170919
  Receipt Date: 20170919
  Transmission Date: 20171128
  Serious: Yes (Hospitalization, Other)
  Sender: FDA-Public Use
  Company Number: RU-ASTRAZENECA-2017SE94338

PATIENT
  Age: 70 Year
  Sex: Female
  Weight: 78 kg

DRUGS (7)
  1. BRILINTA [Suspect]
     Active Substance: TICAGRELOR
     Indication: ANGINA UNSTABLE
     Dosage: 90MG, TWO TIMES A DAY, (ZAO ZIO-ZDOROVIE)
     Route: 048
     Dates: start: 20160316, end: 201612
  2. BRILINTA [Suspect]
     Active Substance: TICAGRELOR
     Indication: STENT PLACEMENT
     Dosage: 90MG, TWO TIMES A DAY, (ZAO ZIO-ZDOROVIE)
     Route: 048
     Dates: start: 201612
  3. THROMBO ASS [Concomitant]
     Active Substance: ASPIRIN
  4. BRILINTA [Suspect]
     Active Substance: TICAGRELOR
     Indication: STENT PLACEMENT
     Dosage: 90MG, TWO TIMES A DAY, (ZAO ZIO-ZDOROVIE)
     Route: 048
     Dates: start: 20160316, end: 201612
  5. BRILINTA [Suspect]
     Active Substance: TICAGRELOR
     Indication: ANGINA UNSTABLE
     Dosage: 90MG, TWO TIMES A DAY, (OOO ASTRAZENECA INDUSTRIES)
     Route: 048
     Dates: start: 201612
  6. BRILINTA [Suspect]
     Active Substance: TICAGRELOR
     Indication: STENT PLACEMENT
     Dosage: 90MG, TWO TIMES A DAY, (OOO ASTRAZENECA INDUSTRIES)
     Route: 048
     Dates: start: 201612
  7. BRILINTA [Suspect]
     Active Substance: TICAGRELOR
     Indication: ANGINA UNSTABLE
     Dosage: 90MG, TWO TIMES A DAY, (ZAO ZIO-ZDOROVIE)
     Route: 048
     Dates: start: 201612

REACTIONS (5)
  - Vascular stent thrombosis [Not Recovered/Not Resolved]
  - Off label use [Not Recovered/Not Resolved]
  - Cardiac failure [Not Recovered/Not Resolved]
  - Contusion [Not Recovered/Not Resolved]
  - Drug ineffective [Not Recovered/Not Resolved]

NARRATIVE: CASE EVENT DATE: 201707
